FAERS Safety Report 23735502 (Version 1)
Quarter: 2024Q2

REPORT INFORMATION
  Report Type: Other
  Country: FR (occurrence: FR)
  Receive Date: 20240412
  Receipt Date: 20240412
  Transmission Date: 20240716
  Serious: Yes (Hospitalization)
  Sender: FDA-Public Use
  Company Number: FR-OrBion Pharmaceuticals Private Limited-2155494

PATIENT
  Age: 19 Year
  Sex: Female
  Weight: 52 kg

DRUGS (1)
  1. VENLAFAXINE HYDROCHLORIDE [Suspect]
     Active Substance: VENLAFAXINE HYDROCHLORIDE
     Indication: Intentional overdose
     Route: 048

REACTIONS (12)
  - Cardiac arrest [Recovering/Resolving]
  - Intentional overdose [Unknown]
  - Antidepressant drug level above therapeutic [Unknown]
  - Toxicity to various agents [Unknown]
  - Seizure [Unknown]
  - Coma [Recovering/Resolving]
  - Body temperature increased [Unknown]
  - Hypotension [Recovering/Resolving]
  - Stress cardiomyopathy [Recovering/Resolving]
  - Sinus tachycardia [Recovering/Resolving]
  - Mydriasis [Unknown]
  - Cardio-respiratory arrest [Recovering/Resolving]
